FAERS Safety Report 5019877-4 (Version None)
Quarter: 2006Q2

REPORT INFORMATION
  Report Type: 
  Country: None (occurrence: None)
  Receive Date: 20060607
  Receipt Date: 20060502
  Transmission Date: 20061013
  Serious: Yes (Life-Threatening, Hospitalization)
  Sender: FDA-Public Use
  Company Number: GB-AMGEN-UK178339

PATIENT
  Sex: Female
  Weight: 60 kg

DRUGS (9)
  1. ARANESP [Suspect]
     Indication: RENAL FAILURE CHRONIC
     Route: 042
     Dates: start: 20060315, end: 20060502
  2. CALCICHEW [Concomitant]
     Route: 048
     Dates: start: 20060411
  3. OMEPRAZOLE [Concomitant]
     Route: 048
     Dates: start: 20060117
  4. ATENOLOL [Concomitant]
     Route: 048
     Dates: start: 20060110
  5. ZINC SULFATE [Concomitant]
     Route: 048
     Dates: start: 20051128
  6. RAMIPRIL [Concomitant]
     Route: 048
     Dates: start: 20051128
  7. ENOXAPARIN SODIUM [Concomitant]
     Route: 042
     Dates: start: 20050809
  8. VENOFER [Concomitant]
     Route: 042
     Dates: start: 20050228
  9. IRBESARTAN [Concomitant]
     Route: 048
     Dates: start: 20040816

REACTIONS (9)
  - ANAPHYLACTIC REACTION [None]
  - BLOOD PRESSURE INCREASED [None]
  - FEELING HOT [None]
  - FLUSHING [None]
  - PARAESTHESIA ORAL [None]
  - RASH [None]
  - TACHYCARDIA [None]
  - THROAT TIGHTNESS [None]
  - URTICARIA [None]
